FAERS Safety Report 7009753 (Version 2)
Quarter: 2013Q4

REPORT INFORMATION
  Report Type: Spontaneous
  Country: US (occurrence: None)
  Receive Date: 20090526
  Receipt Date: 20131108
  Transmission Date: 20140711
  Serious: Yes (Other)
  Sender: FDA-Public Use
  Company Number: 2009S1004042

PATIENT
  Age: 71 Year
  Sex: Male
  Weight: 80.74 kg

DRUGS (6)
  1. SODIUM PHOSPHATE, DIBASIC [Suspect]
     Indication: COLONOSCOPY
     Dosage: 90ML, 2 IN 24 HOURS, ORAL
     Route: 048
     Dates: start: 20070515, end: 20070515
  2. DULCOLAX (BISACODYL) [Suspect]
     Indication: COLONOSCOPY
     Dosage: 4 TABLETS AT 4:00PM, 4 IN ONCE
     Dates: start: 20070515, end: 20070515
  3. DIURETIC (HYDROCHLOROTHIAZIDE) [Concomitant]
  4. POTASSIUM (POTASSIUM) [Concomitant]
  5. CEFAZOLIN (CEFAZOLIN) [Suspect]
     Indication: PRODUCT USED FOR UNKNOWN INDICATION
     Route: 042
     Dates: start: 20070621
  6. METRONIDAZOLE (METRONIDAZOLE) [Suspect]
     Route: 042

REACTIONS (2)
  - Renal failure [None]
  - Dialysis [None]
